FAERS Safety Report 20205679 (Version 1)
Quarter: 2021Q4

REPORT INFORMATION
  Report Type: Other
  Country: GB (occurrence: GB)
  Receive Date: 20211220
  Receipt Date: 20211220
  Transmission Date: 20220303
  Serious: Yes (Other)
  Sender: FDA-Public Use
  Company Number: None

PATIENT
  Age: 90 Year
  Sex: Male

DRUGS (7)
  1. MIRABEGRON [Suspect]
     Active Substance: MIRABEGRON
     Indication: Ill-defined disorder
     Dosage: ONE DAILY
     Route: 065
     Dates: start: 20210930
  2. MIRABEGRON [Suspect]
     Active Substance: MIRABEGRON
     Dosage: UNK UNK, ONCE DAILY
     Route: 065
     Dates: start: 20211213
  3. AMLODIPINE [Concomitant]
     Active Substance: AMLODIPINE BESYLATE
     Indication: Ill-defined disorder
     Dosage: ONE DAILY
     Route: 065
     Dates: start: 20210102
  4. ASPIRIN [Concomitant]
     Active Substance: ASPIRIN
     Indication: Ill-defined disorder
     Dosage: 1 (UNIT NOT PROVIDED), ONCE DAILY
     Route: 065
     Dates: start: 20210102
  5. COCODAMOL [Concomitant]
     Active Substance: ACETAMINOPHEN\CODEINE PHOSPHATE
     Indication: Ill-defined disorder
     Dosage: 1 OR 2 (UNIT NOT PROVIDED), 4 TIMES DAILY
     Route: 065
     Dates: start: 20210102
  6. POLYETHYLENE GLYCOL 3350\POTASSIUM CHLORIDE\SODIUM BICARBONATE\SODIUM [Concomitant]
     Active Substance: POLYETHYLENE GLYCOL 3350\POTASSIUM CHLORIDE\SODIUM BICARBONATE\SODIUM CHLORIDE
     Indication: Ill-defined disorder
     Dosage: UNK UNK, AS NEEDED
     Route: 065
     Dates: start: 20210102
  7. NEBIVOLOL [Concomitant]
     Active Substance: NEBIVOLOL
     Indication: Ill-defined disorder
     Dosage: 2 (UNIT NOT PROVIDED), ONCE DAILY
     Route: 065
     Dates: start: 20210102

REACTIONS (1)
  - Haematuria [Unknown]

NARRATIVE: CASE EVENT DATE: 20210930
